FAERS Safety Report 9400000 (Version 1)
Quarter: 2013Q3

REPORT INFORMATION
  Report Type: Spontaneous
  Country: JP (occurrence: JP)
  Receive Date: 20130715
  Receipt Date: 20130715
  Transmission Date: 20140515
  Serious: Yes (Hospitalization)
  Sender: FDA-Public Use
  Company Number: JP-SANOFI-AVENTIS-2013SA070917

PATIENT
  Age: 51 Year
  Sex: Male

DRUGS (4)
  1. INSULIN GLARGINE [Suspect]
     Indication: PRODUCT USED FOR UNKNOWN INDICATION
     Route: 065
  2. INSULIN GLARGINE [Suspect]
     Indication: SUICIDE ATTEMPT
     Route: 065
  3. INSULIN GLARGINE [Suspect]
     Indication: PRODUCT USED FOR UNKNOWN INDICATION
     Dosage: DOSE:500 UNIT(S)
     Route: 065
  4. INSULIN GLARGINE [Suspect]
     Indication: SUICIDE ATTEMPT
     Dosage: DOSE:500 UNIT(S)
     Route: 065

REACTIONS (4)
  - Hypoglycaemia [Recovering/Resolving]
  - Intentional overdose [Unknown]
  - Altered state of consciousness [Recovering/Resolving]
  - Suicide attempt [Unknown]
